FAERS Safety Report 10751400 (Version 1)
Quarter: 2015Q1

REPORT INFORMATION
  Report Type: Spontaneous
  Country: US (occurrence: US)
  Receive Date: 20150130
  Receipt Date: 20150130
  Transmission Date: 20150721
  Serious: Yes (Hospitalization, Other)
  Sender: FDA-Public Use
  Company Number: US-MYLANLABS-2014SP005515

PATIENT

DRUGS (2)
  1. ENBREL [Suspect]
     Active Substance: ETANERCEPT
     Indication: RHEUMATOID ARTHRITIS
     Dosage: 50 MG, QWK
     Dates: start: 2006, end: 2011
  2. METHOTREXATE [Suspect]
     Active Substance: METHOTREXATE
     Dosage: UNK

REACTIONS (21)
  - Fall [Recovered/Resolved]
  - Platelet count decreased [Unknown]
  - Pain [Unknown]
  - Cystitis [Unknown]
  - Pain in extremity [Not Recovered/Not Resolved]
  - Weight decreased [Recovered/Resolved]
  - Traumatic lung injury [Recovered/Resolved]
  - Weight gain poor [Not Recovered/Not Resolved]
  - Hip fracture [Unknown]
  - Toxicity to various agents [Recovered/Resolved]
  - Asthenia [Unknown]
  - Dehydration [Recovered/Resolved]
  - Stomatitis [Recovered/Resolved]
  - Unevaluable event [Unknown]
  - Facial pain [Not Recovered/Not Resolved]
  - Rib fracture [Recovered/Resolved]
  - Ageusia [Not Recovered/Not Resolved]
  - Insomnia [Not Recovered/Not Resolved]
  - Back pain [Not Recovered/Not Resolved]
  - Chest pain [Not Recovered/Not Resolved]
  - Arthritis [Not Recovered/Not Resolved]

NARRATIVE: CASE EVENT DATE: 201402
